FAERS Safety Report 8623539-1 (Version None)
Quarter: 2012Q3

REPORT INFORMATION
  Report Type: 
  Country: None (occurrence: None)
  Receive Date: 20120827
  Receipt Date: 20120823
  Transmission Date: 20120928
  Serious: Yes (Other)
  Sender: FDA-Public Use
  Company Number: US-PFIZER INC-2012207981

PATIENT
  Age: 52 Year
  Sex: Female
  Weight: 50.794 kg

DRUGS (4)
  1. SYNTHROID [Suspect]
     Indication: HYPOTHYROIDISM
     Dosage: UNK
     Dates: end: 20120101
  2. NICOTROL [Suspect]
     Indication: SMOKING CESSATION THERAPY
     Dosage: UNK
     Route: 048
     Dates: start: 20110101
  3. CALCIUM CARBONATE [Suspect]
     Indication: MINERAL SUPPLEMENTATION
     Dosage: 1200 MG, 1X/DAY
  4. SYNTHROID [Suspect]
     Dosage: 88 UG, UNK
     Dates: start: 20120101

REACTIONS (10)
  - BACK INJURY [None]
  - PSYCHOMOTOR HYPERACTIVITY [None]
  - PAIN [None]
  - INCORRECT DRUG ADMINISTRATION DURATION [None]
  - FALL [None]
  - JOINT INJURY [None]
  - NECK INJURY [None]
  - FEELING ABNORMAL [None]
  - HYPERTHYROIDISM [None]
  - RIB FRACTURE [None]
